FAERS Safety Report 9496907 (Version 2)
Quarter: 2013Q4

REPORT INFORMATION
  Report Type: Spontaneous
  Country: US (occurrence: US)
  Receive Date: 20130904
  Receipt Date: 20131227
  Transmission Date: 20140711
  Serious: Yes (Hospitalization, Other)
  Sender: FDA-Public Use
  Company Number: US-BAYER-2013-105545

PATIENT
  Age: 27 Year
  Sex: Female
  Weight: 67.12 kg

DRUGS (3)
  1. MIRENA [Suspect]
     Indication: CONTRACEPTION
     Dosage: DAILY DOSE 20 ?G
     Route: 015
     Dates: start: 20120719, end: 20121002
  2. VENTOLIN [Concomitant]
     Indication: ASTHMA
     Dosage: INHALE 1-2 PUFFS EVERY 4-6 HOURS
  3. ADVAIR [Concomitant]
     Indication: ASTHMA
     Dosage: 250-50 MCG, 1 INHALATION EVERY 12 HOURS DAILY

REACTIONS (8)
  - Uterine perforation [None]
  - Peritoneal adhesions [None]
  - Genital haemorrhage [None]
  - Medical device pain [None]
  - Injury [None]
  - Device dislocation [None]
  - Pelvic adhesions [None]
  - Infection [None]
